FAERS Safety Report 7749799-7 (Version None)
Quarter: 2011Q3

REPORT INFORMATION
  Report Type: 
  Country: None (occurrence: None)
  Receive Date: 20110914
  Receipt Date: 20110909
  Transmission Date: 20111222
  Serious: No
  Sender: FDA-Public Use
  Company Number: US-PFIZER INC-2011185105

PATIENT
  Sex: Female
  Weight: 67.12 kg

DRUGS (1)
  1. CHANTIX [Suspect]
     Indication: SMOKING CESSATION THERAPY
     Dosage: 0.5 MG, DAILY
     Route: 048
     Dates: start: 20110811

REACTIONS (4)
  - URTICARIA [None]
  - LIP BLISTER [None]
  - SKIN DISORDER [None]
  - RASH [None]
